FAERS Safety Report 5814236-6 (Version None)
Quarter: 2008Q3

REPORT INFORMATION
  Report Type: 
  Country: None (occurrence: None)
  Receive Date: 20080717
  Receipt Date: 20080717
  Transmission Date: 20090109
  Serious: Yes (Other)
  Sender: FDA-Public Use
  Company Number: GB-ABBOTT-08P-167-0456585-00

PATIENT
  Sex: Male

DRUGS (18)
  1. HUMIRA [Suspect]
     Indication: CROHN'S DISEASE
  2. BUDESONIDE [Concomitant]
     Indication: CROHN'S DISEASE
     Route: 048
  3. MESALAMINE [Concomitant]
     Indication: CROHN'S DISEASE
     Route: 048
  4. ATENOLOL [Concomitant]
     Indication: MYOCARDIAL ISCHAEMIA
  5. ATENOLOL [Concomitant]
     Route: 048
  6. ACETYLSALICYLIC ACID SRT [Concomitant]
     Indication: MYOCARDIAL ISCHAEMIA
  7. ACETYLSALICYLIC ACID SRT [Concomitant]
     Route: 048
  8. PANTOPRAZOLE SODIUM [Concomitant]
     Indication: MYOCARDIAL ISCHAEMIA
     Route: 048
  9. RAMIPRIL [Concomitant]
     Indication: MYOCARDIAL ISCHAEMIA
     Route: 048
  10. HYOSCINE HBR HYT [Concomitant]
     Indication: CROHN'S DISEASE
  11. HYOSCINE HBR HYT [Concomitant]
     Indication: PAIN
  12. ISOSORBATE MONONITRATE [Concomitant]
     Indication: MYOCARDIAL ISCHAEMIA
     Route: 048
  13. NICORANDIL [Concomitant]
     Indication: MYOCARDIAL ISCHAEMIA
  14. AMITRIPTYLINE HCL [Concomitant]
     Indication: DRUG USE FOR UNKNOWN INDICATION
  15. TAMSULOSIN HCL [Concomitant]
     Indication: URINARY RETENTION
  16. VIT B12 [Concomitant]
     Indication: DRUG USE FOR UNKNOWN INDICATION
     Dosage: INJECTIONS EVERY 3 MONTHS
     Route: 030
  17. ERGOCALCIFEROL [Concomitant]
     Indication: DRUG USE FOR UNKNOWN INDICATION
  18. CALCIUM [Concomitant]
     Indication: DRUG USE FOR UNKNOWN INDICATION

REACTIONS (1)
  - CARDIAC FAILURE [None]
